FAERS Safety Report 6956404-6 (Version None)
Quarter: 2010Q3

REPORT INFORMATION
  Report Type: 
  Country: None (occurrence: None)
  Receive Date: 20100830
  Receipt Date: 20100819
  Transmission Date: 20110219
  Serious: Yes (Other)
  Sender: FDA-Public Use
  Company Number: B0652369A

PATIENT
  Sex: Female

DRUGS (2)
  1. TYVERB [Suspect]
     Indication: BREAST CANCER
     Route: 065
     Dates: start: 20100315
  2. XELODA [Suspect]
     Indication: BREAST CANCER
     Route: 065
     Dates: start: 20100315

REACTIONS (4)
  - DIARRHOEA [None]
  - HYPERBILIRUBINAEMIA [None]
  - JAUNDICE [None]
  - VOMITING [None]
